FAERS Safety Report 20973448 (Version 2)
Quarter: 2024Q4

REPORT INFORMATION
  Report Type: Spontaneous
  Country: US (occurrence: US)
  Receive Date: 20220617
  Receipt Date: 20241105
  Transmission Date: 20250114
  Serious: Yes (Other)
  Sender: BRISTOL-MYERS SQUIBB COMPANY
  Company Number: US-CELGENE-USA-20220202257

PATIENT
  Age: 68 Year
  Sex: Female
  Weight: 61.69 kg

DRUGS (1)
  1. REVLIMID [Suspect]
     Active Substance: LENALIDOMIDE
     Indication: Plasma cell myeloma
     Dosage: 15 MILLIGRAM, 14 DAYS ON AND 7 DAYS OFF
     Route: 048
     Dates: start: 20220120

REACTIONS (6)
  - Anxiety [Unknown]
  - Confusional state [Recovering/Resolving]
  - Disorientation [Recovering/Resolving]
  - Deep vein thrombosis [Unknown]
  - Constipation [Unknown]
  - Intentional product use issue [Unknown]
